FAERS Safety Report 4331970-8 (Version None)
Quarter: 2004Q2

REPORT INFORMATION
  Report Type: 
  Country: None (occurrence: None)
  Receive Date: 20040405
  Receipt Date: 20030811
  Transmission Date: 20050107
  Serious: No
  Sender: FDA-Public Use
  Company Number: US-GLAXOSMITHKLINE-A0420577A

PATIENT
  Age: 77 Year
  Sex: Male

DRUGS (6)
  1. SEREVENT [Suspect]
     Dosage: 2PUFF TWICE PER DAY
     Route: 055
     Dates: end: 20030809
  2. LANOXIN [Concomitant]
  3. LIPITOR [Concomitant]
  4. AEROBID [Concomitant]
  5. ASPIRIN [Concomitant]
  6. MULTI-VITAMIN [Concomitant]

REACTIONS (1)
  - ARRHYTHMIA [None]
